FAERS Safety Report 15393059 (Version 1)
Quarter: 2018Q3

REPORT INFORMATION
  Report Type: Spontaneous
  Country: US (occurrence: US)
  Receive Date: 20180917
  Receipt Date: 20180917
  Transmission Date: 20181010
  Serious: Yes (Other)
  Sender: FDA-Public Use
  Company Number: US-ABBVIE-18K-163-2483808-00

PATIENT
  Sex: Male

DRUGS (1)
  1. HUMIRA [Suspect]
     Active Substance: ADALIMUMAB
     Indication: MATERNAL EXPOSURE TIMING UNSPECIFIED
     Route: 063

REACTIONS (4)
  - Exposure via breast milk [Unknown]
  - Foetal exposure during pregnancy [Unknown]
  - Foetal distress syndrome [Recovered/Resolved]
  - Foetal heart rate decreased [Recovered/Resolved]

NARRATIVE: CASE EVENT DATE: 20151217
